FAERS Safety Report 6957680-6 (Version None)
Quarter: 2010Q3

REPORT INFORMATION
  Report Type: 
  Country: None (occurrence: None)
  Receive Date: 20100831
  Receipt Date: 20100817
  Transmission Date: 20110219
  Serious: Yes (Other)
  Sender: FDA-Public Use
  Company Number: PHHY2009CA51234

PATIENT
  Sex: Male

DRUGS (2)
  1. SANDOSTATIN LAR [Suspect]
     Indication: NEUROENDOCRINE CARCINOMA
     Dosage: 20 MG, EVERY 4 WEEKS
     Route: 030
     Dates: start: 20090925
  2. OLANZAPINE [Concomitant]
     Dosage: UNK

REACTIONS (22)
  - AGGRESSION [None]
  - APHASIA [None]
  - BLOOD CREATININE INCREASED [None]
  - BLOOD PRESSURE DECREASED [None]
  - BLOOD PRESSURE INCREASED [None]
  - CHEST PAIN [None]
  - CHOLELITHIASIS [None]
  - COCCYDYNIA [None]
  - CONFUSIONAL STATE [None]
  - DISORIENTATION [None]
  - FALL [None]
  - FLATULENCE [None]
  - HYPOPHAGIA [None]
  - METASTASES TO BONE [None]
  - METASTASES TO LIVER [None]
  - MUSCULOSKELETAL PAIN [None]
  - PALLIATIVE CARE [None]
  - PRURITUS [None]
  - RENAL FAILURE [None]
  - REPETITIVE SPEECH [None]
  - SOMNOLENCE [None]
  - SPEECH DISORDER [None]
